FAERS Safety Report 5845718-9 (Version None)
Quarter: 2008Q3

REPORT INFORMATION
  Report Type: 
  Country: None (occurrence: None)
  Receive Date: 20080814
  Receipt Date: 20080806
  Transmission Date: 20090109
  Serious: Yes (Hospitalization, Other)
  Sender: FDA-Public Use
  Company Number: PHHY2008GB13062

PATIENT
  Sex: Male

DRUGS (3)
  1. CLOZARIL [Suspect]
     Indication: SCHIZOPHRENIA
     Dosage: 100 MG MORN AND 350 MG NOCTE DAILY
     Route: 048
     Dates: start: 20030107, end: 20080702
  2. CLOZARIL [Suspect]
     Dosage: UNK
     Dates: start: 20080626
  3. OLANZAPINE [Concomitant]
     Dosage: 5 MG
     Dates: start: 20080702

REACTIONS (13)
  - CACHEXIA [None]
  - COMPUTERISED TOMOGRAM ABNORMAL [None]
  - DEHYDRATION [None]
  - HEPATIC LESION [None]
  - LEUKOPENIA [None]
  - LUNG DISORDER [None]
  - LYMPHADENOPATHY [None]
  - MALAISE [None]
  - NEUTROPENIA [None]
  - NEUTROPHIL COUNT DECREASED [None]
  - TREATMENT NONCOMPLIANCE [None]
  - WEIGHT DECREASED [None]
  - WHITE BLOOD CELL COUNT DECREASED [None]
